FAERS Safety Report 20319044 (Version 1)
Quarter: 2022Q1

REPORT INFORMATION
  Report Type: Spontaneous
  Country: US (occurrence: US)
  Receive Date: 20220110
  Receipt Date: 20220110
  Transmission Date: 20220423
  Serious: No
  Sender: FDA-Public Use
  Company Number: US-PFIZER INC-202100993165

PATIENT
  Age: 39 Year
  Sex: Male

DRUGS (1)
  1. CHANTIX [Suspect]
     Active Substance: VARENICLINE TARTRATE
     Dosage: UNK

REACTIONS (10)
  - Alopecia areata [Unknown]
  - Lymphadenopathy [Unknown]
  - Lymph node pain [Unknown]
  - Poor quality sleep [Unknown]
  - Weight decreased [Unknown]
  - Fatigue [Unknown]
  - Malaise [Unknown]
  - Skin mass [Unknown]
  - Recalled product administered [Unknown]
  - Appetite disorder [Unknown]
